FAERS Safety Report 5855070-0 (Version None)
Quarter: 2008Q3

REPORT INFORMATION
  Report Type: 
  Country: None (occurrence: None)
  Receive Date: 20080822
  Receipt Date: 20080626
  Transmission Date: 20090109
  Serious: No
  Sender: FDA-Public Use
  Company Number: US-ABBOTT-08P-163-0459739-00

PATIENT
  Sex: Female
  Weight: 87.168 kg

DRUGS (5)
  1. SYNTHROID [Suspect]
     Indication: HYPOTHYROIDISM
     Dosage: DOSE VARIED
     Route: 048
     Dates: start: 20040101, end: 20051001
  2. SYNTHROID [Suspect]
     Dosage: 112MCG AND 125MCG
     Dates: start: 20051001
  3. SYNTHROID [Suspect]
     Dosage: 100MCG AND 112MCG
     Dates: start: 20060901
  4. SYNTHROID [Suspect]
     Dates: end: 20080423
  5. SYNTHROID [Suspect]
     Dosage: 75MCG 2 X WEEKLY, AND 88 MCG TAKE 5 DAYS A WEEK
     Dates: start: 20080424

REACTIONS (10)
  - ASTHENIA [None]
  - BACK PAIN [None]
  - FATIGUE [None]
  - FEELING ABNORMAL [None]
  - FEELING HOT [None]
  - HYPERTHYROIDISM [None]
  - INSOMNIA [None]
  - MALAISE [None]
  - NAUSEA [None]
  - PAIN [None]
